FAERS Safety Report 6523712-2 (Version None)
Quarter: 2009Q4

REPORT INFORMATION
  Report Type: 
  Country: None (occurrence: None)
  Receive Date: 20091231
  Receipt Date: 20091215
  Transmission Date: 20100525
  Serious: Yes (Hospitalization, Other)
  Sender: FDA-Public Use
  Company Number: PHHY2009US54184

PATIENT
  Sex: Female
  Weight: 49.8 kg

DRUGS (4)
  1. EXJADE [Suspect]
     Indication: CHELATION THERAPY
     Dosage: 1000 MG, QD
     Route: 048
     Dates: start: 20060318
  2. EXJADE [Suspect]
     Dosage: 1500 MG, QD
     Route: 048
     Dates: start: 20061001
  3. EXJADE [Suspect]
     Dosage: 1625 MG, QD
     Route: 048
     Dates: start: 20081125
  4. EXJADE [Suspect]
     Dosage: 1500 MG, QD
     Route: 048
     Dates: start: 20090904

REACTIONS (5)
  - ASPARTATE AMINOTRANSFERASE INCREASED [None]
  - CHOLECYSTECTOMY [None]
  - DIARRHOEA [None]
  - SERUM FERRITIN INCREASED [None]
  - WEIGHT DECREASED [None]
